FAERS Safety Report 8023744-1 (Version None)
Quarter: 2012Q1

REPORT INFORMATION
  Report Type: 
  Country: None (occurrence: None)
  Receive Date: 20120105
  Receipt Date: 20120103
  Transmission Date: 20120608
  Serious: Yes (Hospitalization)
  Sender: FDA-Public Use
  Company Number: US-VERTEX PHARMACEUTICALS INC.-AE-2012-000040

PATIENT
  Sex: Female

DRUGS (3)
  1. RIBAVIRIN [Concomitant]
     Indication: HEPATITIS C
     Dates: start: 20110909
  2. PEG-INTRON [Concomitant]
     Indication: HEPATITIS C
     Dates: start: 20110919
  3. INCIVEK [Suspect]
     Indication: HEPATITIS C
     Route: 048
     Dates: start: 20110909

REACTIONS (5)
  - ANAEMIA [None]
  - PULMONARY THROMBOSIS [None]
  - THROMBOSIS [None]
  - FATIGUE [None]
  - CHEST PAIN [None]
